FAERS Safety Report 16417384 (Version 9)
Quarter: 2022Q2

REPORT INFORMATION
  Report Type: Spontaneous
  Country: ES (occurrence: ES)
  Receive Date: 20190611
  Receipt Date: 20220415
  Transmission Date: 20220721
  Serious: Yes (Life-Threatening, Hospitalization, Other)
  Sender: FDA-Public Use
  Company Number: PHHY2019ES129950

PATIENT
  Age: 81 Year
  Sex: Female

DRUGS (11)
  1. LEVETIRACETAM [Interacting]
     Active Substance: LEVETIRACETAM
     Indication: Product used for unknown indication
     Dosage: UNK
     Route: 065
  2. CITALOPRAM [Interacting]
     Active Substance: CITALOPRAM HYDROBROMIDE
     Indication: Major depression
     Dosage: 20 MG, Q12H
     Route: 065
     Dates: start: 201505
  3. CITALOPRAM [Interacting]
     Active Substance: CITALOPRAM HYDROBROMIDE
     Indication: Antidepressant therapy
  4. TRAMADOL [Interacting]
     Active Substance: TRAMADOL
     Indication: Pain
     Dosage: 50MG /8H
     Route: 048
     Dates: start: 201409
  5. TRAMADOL [Interacting]
     Active Substance: TRAMADOL
     Indication: Major depression
  6. OMEPRAZOLE [Concomitant]
     Active Substance: OMEPRAZOLE
     Indication: Product used for unknown indication
     Dosage: 20 MG, Q12H
     Route: 065
     Dates: start: 201309
  7. TOLTERODINE [Concomitant]
     Active Substance: TOLTERODINE
     Indication: Product used for unknown indication
     Dosage: 2 MG, QD
     Route: 065
     Dates: start: 201506
  8. LATANOPROST [Concomitant]
     Active Substance: LATANOPROST
     Indication: Cerebrovascular accident
     Dosage: 3 DF, Q24H
     Route: 047
     Dates: start: 201310
  9. MEGESTROL [Concomitant]
     Active Substance: MEGESTROL
     Indication: Product used for unknown indication
     Dosage: 160 MG, Q12H
     Route: 065
     Dates: start: 201504
  10. LORMETAZEPAM [Concomitant]
     Active Substance: LORMETAZEPAM
     Indication: Product used for unknown indication
     Dosage: 2 MG, Q24H
     Route: 065
     Dates: start: 201505
  11. DICLOFENAC [Concomitant]
     Active Substance: DICLOFENAC
     Indication: Product used for unknown indication
     Dosage: 50 MG, Q8H
     Route: 065
     Dates: start: 201309, end: 201505

REACTIONS (13)
  - Serotonin syndrome [Recovered/Resolved with Sequelae]
  - Dysphonia [Unknown]
  - Depressed level of consciousness [Unknown]
  - Condition aggravated [Unknown]
  - Aphonia [Unknown]
  - Confusional state [Unknown]
  - Drug ineffective [Unknown]
  - Hypertension [Unknown]
  - Pyrexia [Unknown]
  - Tachycardia [Unknown]
  - Disorientation [Unknown]
  - Myoclonus [Unknown]
  - Drug interaction [Unknown]

NARRATIVE: CASE EVENT DATE: 20150706
